FAERS Safety Report 5564703-8 (Version None)
Quarter: 2007Q4

REPORT INFORMATION
  Report Type: 
  Country: None (occurrence: None)
  Receive Date: 20071218
  Receipt Date: 20071204
  Transmission Date: 20080405
  Serious: Yes (Hospitalization)
  Sender: FDA-Public Use
  Company Number: CA-ELI_LILLY_AND_COMPANY-CA200712001008

PATIENT
  Age: 53 Year
  Sex: Female

DRUGS (8)
  1. FORTEO [Suspect]
     Indication: OSTEOPOROSIS
     Dosage: 20 UG, DAILY (1/D)
     Route: 058
     Dates: start: 20050914, end: 20060601
  2. FORTEO [Suspect]
     Dosage: 20 UG, DAILY (1/D)
     Route: 058
     Dates: start: 20070419
  3. ELTROXIN [Concomitant]
  4. PREMARIN [Concomitant]
  5. POTASSIUM CHLORIDE [Concomitant]
  6. LASIX [Concomitant]
  7. DEMEROL [Concomitant]
     Dosage: UNK, EACH EVENING
  8. FIORINAL [Concomitant]
     Dosage: UNK, EACH EVENING

REACTIONS (1)
  - URINARY TRACT INFECTION [None]
